FAERS Safety Report 9309269 (Version 1)
Quarter: 2013Q2

REPORT INFORMATION
  Report Type: Spontaneous
  Country: US (occurrence: US)
  Receive Date: 20130525
  Receipt Date: 20130525
  Transmission Date: 20140414
  Serious: No
  Sender: FDA-Public Use
  Company Number: US-BRISTOL-MYERS SQUIBB COMPANY-18578971

PATIENT
  Sex: Male

DRUGS (2)
  1. BYETTA PEN DISPOSABLE [Suspect]
     Route: 058
  2. EXENATIDE UNK STRENGTH PEN, DISPOSABLE DEVICE [Suspect]

REACTIONS (1)
  - Hypoglycaemia [Unknown]
